FAERS Safety Report 9559288 (Version 4)
Quarter: 2013Q4

REPORT INFORMATION
  Report Type: Report from Study
  Country: CA (occurrence: CA)
  Receive Date: 20130927
  Receipt Date: 20131003
  Transmission Date: 20140711
  Serious: Yes (Hospitalization, Other)
  Sender: FDA-Public Use
  Company Number: PHHY2011CA39950

PATIENT
  Age: 69 Year
  Sex: Female
  Weight: 68 kg

DRUGS (15)
  1. ASPIRIN [Concomitant]
     Dosage: 81 MG, QD
     Route: 048
  2. PRILOSEC [Concomitant]
     Dosage: UNK UKN, QD
     Route: 048
  3. LANTUS [Concomitant]
     Dosage: 12 U, UNK
     Route: 058
  4. HUMALOG [Concomitant]
     Dosage: 5 UNITS BID AND 9 UNITS WITH SUPPER U, UNK
     Route: 058
  5. PROTON PUMP INHIBITORS [Concomitant]
     Dosage: UNK UKN, UNK
  6. ACLASTA/ZOLEDRONATE [Suspect]
     Indication: OSTEOPOROSIS
     Dosage: 5 MG/100 ML, ANNUAL
     Route: 042
     Dates: start: 20090408
  7. ACLASTA/ZOLEDRONATE [Suspect]
     Dosage: 5 MG/100 ML, ANNUAL
     Route: 042
     Dates: start: 20110411
  8. ACLASTA/ZOLEDRONATE [Suspect]
     Dosage: 5 MG/100 ML, ANNUAL
     Route: 042
     Dates: start: 20120424
  9. ALTACE [Concomitant]
     Dosage: 10 MG, QD
     Route: 048
  10. LIPITOR [Concomitant]
     Dosage: 40 MG, QD
     Route: 048
  11. DIOVAN [Concomitant]
  12. CITRACAL [Concomitant]
  13. INSULIN [Concomitant]
  14. VITAMIN D [Concomitant]
     Dosage: 1000 IU, DAILY
     Dates: start: 200606, end: 20100408
  15. CALCIUM [Concomitant]
     Dosage: 1000 MG, UNK
     Dates: start: 199312, end: 2009

REACTIONS (6)
  - Femur fracture [Recovered/Resolved]
  - Fall [Recovered/Resolved]
  - Atypical femur fracture [Recovered/Resolved]
  - Impaired healing [Unknown]
  - Fracture displacement [Unknown]
  - Foot fracture [Recovering/Resolving]
